FAERS Safety Report 9302092 (Version 2)
Quarter: 2013Q4

REPORT INFORMATION
  Report Type: Spontaneous
  Country: US (occurrence: US)
  Receive Date: 20130521
  Receipt Date: 20131108
  Transmission Date: 20140711
  Serious: Yes (Hospitalization, Other)
  Sender: FDA-Public Use
  Company Number: US-B.I. PHARMACEUTICALS,INC./RIDGEFIELD-2013-BI-13962BP

PATIENT
  Sex: Male
  Weight: 74.84 kg

DRUGS (10)
  1. PRADAXA [Suspect]
     Indication: ANTICOAGULANT THERAPY
     Dates: start: 20110324, end: 20110519
  2. PRADAXA [Suspect]
     Indication: ATRIAL FIBRILLATION
  3. COZAAR [Concomitant]
  4. LANOXIN [Concomitant]
  5. LASIX [Concomitant]
  6. FLOMAX [Concomitant]
  7. ASPIRIN [Concomitant]
  8. LOPRESSOR [Concomitant]
  9. NORVASC [Concomitant]
  10. ZOCOR [Concomitant]

REACTIONS (4)
  - Gastrointestinal haemorrhage [Unknown]
  - Coagulopathy [Unknown]
  - Anaemia [Unknown]
  - Renal failure acute [Unknown]
